FAERS Safety Report 18276992 (Version 1)
Quarter: 2020Q3

REPORT INFORMATION
  Report Type: Spontaneous
  Country: US (occurrence: US)
  Receive Date: 20200917
  Receipt Date: 20200917
  Transmission Date: 20201103
  Serious: Yes (Hospitalization)
  Sender: FDA-Public Use
  Company Number: US-MYLANLABS-2020M1078060

PATIENT
  Age: 16 Year
  Sex: Female

DRUGS (12)
  1. VANCOMYCIN [Suspect]
     Active Substance: VANCOMYCIN
     Indication: PYOMETRA
     Dosage: UNK
     Route: 065
  2. SULPHAMETHOXAZOLE/TRIMETHOPRIM [Suspect]
     Active Substance: SULFAMETHOXAZOLE\TRIMETHOPRIM
     Indication: PYOMETRA
     Dosage: FOR 14 DAYS
     Route: 065
  3. LEVOFLOXACIN. [Suspect]
     Active Substance: LEVOFLOXACIN
     Indication: PYOMETRA
     Dosage: UNK
     Route: 065
  4. GENTAMICIN. [Suspect]
     Active Substance: GENTAMICIN
     Indication: PYOMETRA
     Dosage: UNK
     Route: 042
  5. DOXYCYCLINE. [Suspect]
     Active Substance: DOXYCYCLINE
     Indication: PYOMETRA
     Dosage: ADMINISTERED 24 HOURS DURING HOSPITALISATION
     Route: 048
  6. CEFOXITIN [Suspect]
     Active Substance: CEFOXITIN SODIUM
     Indication: PYOMETRA
     Dosage: UNK
     Route: 042
  7. DOXYCYCLINE. [Suspect]
     Active Substance: DOXYCYCLINE
     Dosage: ADMINISTERED 14 DAYS AFTER THE DISCHARGED FROM HOSPITAL
     Route: 048
  8. CEFTRIAXONE. [Suspect]
     Active Substance: CEFTRIAXONE
     Indication: PYOMETRA
     Dosage: UNK
     Route: 042
  9. CLINDAMYCIN. [Suspect]
     Active Substance: CLINDAMYCIN
     Indication: PYOMETRA
     Dosage: UNK
     Route: 065
  10. CEFDINIR. [Suspect]
     Active Substance: CEFDINIR
     Indication: PYOMETRA
     Dosage: FOR 10 DAYS
     Route: 065
  11. LEVONORGESTREL. [Concomitant]
     Active Substance: LEVONORGESTREL
     Indication: HORMONE THERAPY
     Dosage: INTRAUTERINE DEVICE
     Route: 015
  12. NORMAL SALINE [Concomitant]
     Active Substance: SODIUM CHLORIDE
     Indication: IRRIGATION THERAPY
     Dosage: UNK
     Route: 065

REACTIONS (1)
  - Treatment failure [Unknown]
